FAERS Safety Report 4533048-7 (Version None)
Quarter: 2004Q4

REPORT INFORMATION
  Report Type: 
  Country: None (occurrence: None)
  Receive Date: 20041210
  Receipt Date: 20040827
  Transmission Date: 20050328
  Serious: No
  Sender: FDA-Public Use
  Company Number: 2004-00422

PATIENT
  Age: 50 Year
  Sex: Male

DRUGS (1)
  1. VELCADE [Suspect]
     Indication: LYMPHOMA
     Dates: start: 20040101

REACTIONS (2)
  - GASTROINTESTINAL HAEMORRHAGE [None]
  - PLATELET COUNT DECREASED [None]
